FAERS Safety Report 5427551-5 (Version None)
Quarter: 2007Q3

REPORT INFORMATION
  Report Type: 
  Country: None (occurrence: None)
  Receive Date: 20070828
  Receipt Date: 20070820
  Transmission Date: 20080115
  Serious: Yes (Hospitalization)
  Sender: FDA-Public Use
  Company Number: A0666080A

PATIENT
  Age: 72 Year
  Sex: Male
  Weight: 71.4 kg

DRUGS (12)
  1. COREG CR [Suspect]
     Dosage: 80MG PER DAY
     Route: 048
     Dates: start: 20070601
  2. COREG [Suspect]
     Indication: DRUG USE FOR UNKNOWN INDICATION
  3. GLYBURIDE AND METFORMIN HCL [Concomitant]
     Route: 048
  4. LISINOPRIL [Concomitant]
     Dosage: 5MG TWICE PER DAY
     Route: 048
  5. WARFARIN [Concomitant]
     Dosage: 7MG PER DAY
     Route: 048
  6. FUROSEMIDE [Concomitant]
     Dosage: 40MG PER DAY
     Route: 048
  7. ASPIRIN [Concomitant]
     Dosage: 81MG PER DAY
     Route: 048
  8. DIGITEK [Concomitant]
     Dosage: .25MG PER DAY
     Route: 048
  9. SPIRONOLACTONE [Concomitant]
     Dosage: 25MG PER DAY
     Route: 048
  10. TEMAZEPAM [Concomitant]
  11. LIPITOR [Concomitant]
     Dosage: 20MG PER DAY
     Route: 048
  12. ACIPHEX [Concomitant]
     Dosage: 20MG PER DAY
     Route: 048

REACTIONS (11)
  - ASTHENIA [None]
  - BALANCE DISORDER [None]
  - CONFUSIONAL STATE [None]
  - DIZZINESS [None]
  - DYSARTHRIA [None]
  - FATIGUE [None]
  - HYPOTENSION [None]
  - OVERDOSE [None]
  - PRESYNCOPE [None]
  - VISION BLURRED [None]
  - VISUAL ACUITY REDUCED [None]
